FAERS Safety Report 23107715 (Version 2)
Quarter: 2023Q4

REPORT INFORMATION
  Report Type: Spontaneous
  Country: US (occurrence: US)
  Receive Date: 20231026
  Receipt Date: 20231211
  Transmission Date: 20240109
  Serious: Yes (Hospitalization)
  Sender: FDA-Public Use
  Company Number: US-BEH-2023164687

PATIENT
  Sex: Male

DRUGS (1)
  1. HIZENTRA [Suspect]
     Active Substance: HUMAN IMMUNOGLOBULIN G
     Indication: Chronic inflammatory demyelinating polyradiculoneuropathy
     Dosage: 19 GRAM, QW
     Route: 058
     Dates: start: 202206

REACTIONS (4)
  - Tremor [Unknown]
  - Pneumonia [Unknown]
  - Therapy cessation [Unknown]
  - No adverse event [Unknown]
